FAERS Safety Report 9031710 (Version 4)
Quarter: 2013Q1

REPORT INFORMATION
  Report Type: Spontaneous
  Country: JP (occurrence: JP)
  Receive Date: 20130124
  Receipt Date: 20130320
  Transmission Date: 20140127
  Serious: Yes (Other)
  Sender: FDA-Public Use
  Company Number: JP-UCBSA-076144

PATIENT
  Age: 17 Year
  Sex: Female
  Weight: 35.6 kg

DRUGS (9)
  1. E KEPPRA [Suspect]
     Indication: COMPLEX PARTIAL SEIZURES
     Route: 048
     Dates: start: 20111114
  2. DEPAKENE [Suspect]
     Indication: COMPLEX PARTIAL SEIZURES
     Dosage: TOTAL DAILY DOSE: 699 MG
     Route: 048
     Dates: end: 20130121
  3. TEGRETOL [Concomitant]
     Indication: COMPLEX PARTIAL SEIZURES
     Dosage: TOTAL DAILY DOSE: 249 MG
     Route: 048
     Dates: start: 20030115
  4. ARTIST [Concomitant]
     Indication: CARDIAC FAILURE
     Dosage: TOTAL DAILY DOSE: 5 MG
     Route: 048
     Dates: start: 20100909
  5. INHIBACE [Concomitant]
     Indication: CARDIAC FAILURE
     Dosage: DAILY DOSE: 0.5 MG
     Route: 048
  6. GASMOTIN [Concomitant]
     Indication: GASTROOESOPHAGEAL REFLUX DISEASE
     Dosage: DAILY DOSE: 7.8 MG
     Route: 048
     Dates: start: 20050915
  7. MUCODYNE DS [Concomitant]
     Indication: BRONCHITIS CHRONIC
     Dosage: DAILY DOSE: 699 MG
     Route: 048
     Dates: start: 20101008
  8. MUCOSOLVAN DS [Concomitant]
     Indication: BRONCHITIS CHRONIC
     Dosage: DAILY DOSE: 15 MG FOR PAEDIATRIC
     Route: 048
     Dates: start: 20101008
  9. CLARITH [Concomitant]
     Indication: BRONCHITIS CHRONIC
     Dosage: DAILY DOSE: 200 MG
     Route: 048
     Dates: start: 20020801

REACTIONS (1)
  - Fanconi syndrome [Not Recovered/Not Resolved]
